FAERS Safety Report 9807825 (Version 1)
Quarter: 2014Q1

REPORT INFORMATION
  Report Type: Spontaneous
  Country: ES (occurrence: None)
  Receive Date: 20140108
  Receipt Date: 20140108
  Transmission Date: 20141002
  Serious: Yes (Hospitalization)
  Sender: FDA-Public Use
  Company Number: SYM-2014-14625

PATIENT
  Age: 67 Year
  Sex: Male

DRUGS (3)
  1. FLUOROURACIL (FLUOROURACIL) [Suspect]
     Indication: RECTAL ADENOCARCINOMA
     Dates: start: 198710
  2. MITOMYCIN (MITOMYCIN) (MITOMYCIN) [Suspect]
     Indication: RECTAL ADENOCARCINOMA
     Dates: start: 198710
  3. THERAPEUTIC RADIOPHARMACEUTICALS (THERAPEUTIC RADIOPHARMACEUTICALS) [Concomitant]

REACTIONS (2)
  - Off label use [None]
  - Haemolytic uraemic syndrome [None]
